FAERS Safety Report 6494940-X (Version None)
Quarter: 2009Q4

REPORT INFORMATION
  Report Type: 
  Country: None (occurrence: None)
  Receive Date: 20091209
  Receipt Date: 20091126
  Transmission Date: 20100525
  Serious: Yes (Other)
  Sender: FDA-Public Use
  Company Number: 680008M09FRA

PATIENT
  Age: 31 Year
  Sex: Female

DRUGS (3)
  1. PERGOVERIS (FIXED COMBINATION OF R-HFSH AND R-HLH) [Suspect]
     Indication: IN VITRO FERTILISATION
     Dates: start: 20090901
  2. GONAL-F [Suspect]
     Indication: IN VITRO FERTILISATION
     Dosage: 450 IU
  3. CETROTIDE [Suspect]
     Indication: IN VITRO FERTILISATION
     Dosage: 0.25 MG

REACTIONS (3)
  - DRUG EXPOSURE BEFORE PREGNANCY [None]
  - INJECTION SITE ERYTHEMA [None]
  - SYNCOPE [None]
